FAERS Safety Report 15023481 (Version 1)
Quarter: 2018Q2

REPORT INFORMATION
  Report Type: Spontaneous
  Country: US (occurrence: US)
  Receive Date: 20180602
  Receipt Date: 20180602
  Transmission Date: 20180711
  Serious: No
  Sender: FDA-Public Use
  Company Number: None

PATIENT
  Age: 31 Year
  Sex: Female
  Weight: 65.25 kg

DRUGS (1)
  1. VIVITROL [Suspect]
     Active Substance: NALTREXONE
     Indication: DRUG DEPENDENCE
     Dosage: ?          QUANTITY:1 DF DOSAGE FORM;OTHER FREQUENCY:30 DAYS;?
     Route: 030

REACTIONS (1)
  - Alopecia [None]

NARRATIVE: CASE EVENT DATE: 20180528
